FAERS Safety Report 24963759 (Version 3)
Quarter: 2025Q3

REPORT INFORMATION
  Report Type: Spontaneous
  Country: JP (occurrence: JP)
  Receive Date: 20250213
  Receipt Date: 20250802
  Transmission Date: 20251021
  Serious: Yes (Other)
  Sender: ALEXION PHARMACEUTICALS
  Company Number: JP-ASTRAZENECA-240120100_010520_P_1

PATIENT
  Age: 72 Year
  Sex: Female
  Weight: 53 kg

DRUGS (23)
  1. FULVESTRANT [Suspect]
     Active Substance: FULVESTRANT
     Indication: Breast cancer female
  2. FULVESTRANT [Suspect]
     Active Substance: FULVESTRANT
     Indication: Breast cancer
     Dates: start: 20191017, end: 20241210
  3. FULVESTRANT [Suspect]
     Active Substance: FULVESTRANT
     Dosage: 500 MILLIGRAM, QD
     Dates: start: 20240820, end: 20241210
  4. TRUQAP [Suspect]
     Active Substance: CAPIVASERTIB
     Indication: Breast cancer
     Dosage: ON A 4-DAYS-ON, 3-DAYS-OFF SCHEDULE
     Dates: start: 20240821
  5. TRUQAP [Suspect]
     Active Substance: CAPIVASERTIB
     Dosage: ON A 4-DAYS-ON, 3-DAYS-OFF SCHEDULE
     Dates: start: 20240820, end: 20240903
  6. TRUQAP [Suspect]
     Active Substance: CAPIVASERTIB
     Dosage: ON A 4-DAYS-ON, 3-DAYS-OFF SCHEDULE
     Dates: start: 20240911, end: 20240911
  7. TRUQAP [Suspect]
     Active Substance: CAPIVASERTIB
     Dosage: ON A 4-DAYS-ON, 3-DAYS-OFF SCHEDULE
     Dates: start: 20241107, end: 20241210
  8. FEMARA [Concomitant]
     Active Substance: LETROZOLE
     Indication: Breast cancer
     Route: 065
     Dates: start: 20231010, end: 20240806
  9. IBRANCE [Concomitant]
     Active Substance: PALBOCICLIB
     Indication: Breast cancer
     Route: 065
  10. DENOSUMAB [Concomitant]
     Active Substance: DENOSUMAB
     Indication: Breast cancer
     Dates: start: 20240625
  11. LOXOPROFEN [Concomitant]
     Active Substance: LOXOPROFEN
     Indication: Pain
  12. REBAMIPIDE [Concomitant]
     Active Substance: REBAMIPIDE
     Indication: Pain
  13. CALCIUM CARBONATE\CHOLECALCIFEROL\MAGNESIUM CARBONATE [Concomitant]
     Active Substance: CALCIUM CARBONATE\CHOLECALCIFEROL\MAGNESIUM CARBONATE
     Indication: Breast cancer
     Dates: start: 20200724
  14. MIYA-BM [Concomitant]
     Active Substance: CLOSTRIDIUM BUTYRICUM SPORES STRAIN M-55
     Dates: start: 20240625, end: 20241202
  15. MIYA-BM [Concomitant]
     Active Substance: CLOSTRIDIUM BUTYRICUM SPORES STRAIN M-55
     Indication: Prophylaxis
  16. FAMOTIDINE [Concomitant]
     Active Substance: FAMOTIDINE
     Dates: start: 20241004, end: 20241018
  17. MAGNESIUM OXIDE [Concomitant]
     Active Substance: MAGNESIUM OXIDE
  18. ESZOPICLONE [Concomitant]
     Active Substance: ESZOPICLONE
     Dates: start: 20241010, end: 20241010
  19. METOCLOPRAMIDE [Concomitant]
     Active Substance: METOCLOPRAMIDE
     Dates: start: 20241029
  20. LANSOPRAZOLE [Concomitant]
     Active Substance: LANSOPRAZOLE
     Dates: start: 20241029
  21. GLYCERIN [Concomitant]
     Active Substance: GLYCERIN
     Route: 065
  22. GLYCERIN [Concomitant]
     Active Substance: GLYCERIN
     Route: 065
  23. DEXAMETHASONE SODIUM PHOSPHATE [Concomitant]
     Active Substance: DEXAMETHASONE SODIUM PHOSPHATE
     Route: 065
     Dates: start: 20241007, end: 20241019

REACTIONS (4)
  - Hyperglycaemia [Not Recovered/Not Resolved]
  - Erythema multiforme [Recovered/Resolved]
  - Pyrexia [Recovered/Resolved]
  - Decreased appetite [Not Recovered/Not Resolved]

NARRATIVE: CASE EVENT DATE: 20240901
